FAERS Safety Report 18147609 (Version 2)
Quarter: 2020Q4

REPORT INFORMATION
  Report Type: Report from Study
  Country: None (occurrence: CH)
  Receive Date: 20200814
  Receipt Date: 20201013
  Transmission Date: 20210113
  Serious: Yes (Hospitalization, Other)
  Sender: FDA-Public Use
  Company Number: CH-ABBVIE-20K-151-3522885-00

PATIENT
  Age: 43 Year
  Sex: Male
  Weight: 79 kg

DRUGS (6)
  1. HUMIRA [Suspect]
     Active Substance: ADALIMUMAB
     Route: 058
     Dates: start: 2020
  2. CO VALSARTAN [HYDROCHLOROTHIAZIDE;VALSARTAN] [Concomitant]
     Active Substance: HYDROCHLOROTHIAZIDE\VALSARTAN
     Indication: HYPERTENSION
     Dosage: 160/12.5 1 X DAY IN THE MORNING
     Route: 048
     Dates: start: 2019
  3. MAGNESIA S. PELLEGRINO [Concomitant]
     Indication: PRODUCT USED FOR UNKNOWN INDICATION
     Dosage: 1 MEASURING SPOON. MAX 1 X DAY, RESERVE
  4. HUMIRA [Suspect]
     Active Substance: ADALIMUMAB
     Indication: PSORIATIC ARTHROPATHY
     Route: 058
     Dates: start: 20200719, end: 2020
  5. HUMIRA [Suspect]
     Active Substance: ADALIMUMAB
     Indication: PSORIASIS
     Route: 058
     Dates: start: 20130408, end: 20200614
  6. LAXOBERON [Concomitant]
     Active Substance: SODIUM PICOSULFATE
     Indication: CONSTIPATION
     Dosage: MAX 1 X DAY, RESERVE
     Route: 048
     Dates: start: 20200922

REACTIONS (9)
  - Blood glucose increased [Not Recovered/Not Resolved]
  - Diverticulitis [Recovered/Resolved]
  - Alanine aminotransferase increased [Recovered/Resolved]
  - Abscess [Recovered/Resolved]
  - C-reactive protein increased [Recovering/Resolving]
  - Gamma-glutamyltransferase increased [Recovered/Resolved]
  - Colitis [Recovered/Resolved]
  - Colitis [Recovered/Resolved]
  - Blood phosphorus decreased [Recovered/Resolved]

NARRATIVE: CASE EVENT DATE: 2020
